FAERS Safety Report 13046522 (Version 1)
Quarter: 2016Q4

REPORT INFORMATION
  Report Type: Report from Study
  Country: KR (occurrence: KR)
  Receive Date: 20161220
  Receipt Date: 20161220
  Transmission Date: 20170207
  Serious: Yes (Death, Life-Threatening, Hospitalization)
  Sender: FDA-Public Use
  Company Number: KR-CELGENEUS-KOR-2016070643

PATIENT
  Age: 83 Year
  Sex: Female
  Weight: 56 kg

DRUGS (7)
  1. REVLIMID [Suspect]
     Active Substance: LENALIDOMIDE
     Dosage: NOT PROVIDED
     Route: 048
     Dates: start: 20160725
  2. DEXAMETHASONE. [Suspect]
     Active Substance: DEXAMETHASONE
     Dosage: 40MG
     Route: 041
     Dates: start: 20160816, end: 20160819
  3. REVLIMID [Suspect]
     Active Substance: LENALIDOMIDE
     Dosage: 10MG
     Route: 048
     Dates: start: 20160705, end: 20160719
  4. DEXAMETHASONE. [Suspect]
     Active Substance: DEXAMETHASONE
     Dosage: 40MG
     Route: 041
     Dates: start: 20160705, end: 20160708
  5. REVLIMID [Suspect]
     Active Substance: LENALIDOMIDE
     Indication: PLASMA CELL MYELOMA
     Dosage: 25MG
     Route: 048
     Dates: start: 20160607
  6. REVLIMID [Suspect]
     Active Substance: LENALIDOMIDE
     Dosage: NOT PROVIDED
     Route: 048
     Dates: start: 20160816, end: 20160905
  7. DEXAMETHASONE. [Suspect]
     Active Substance: DEXAMETHASONE
     Indication: STEROID THERAPY
     Dosage: 40MG
     Route: 041
     Dates: start: 20160607, end: 20160610

REACTIONS (6)
  - Urosepsis [Fatal]
  - Febrile neutropenia [Recovered/Resolved]
  - Deep vein thrombosis [Not Recovered/Not Resolved]
  - Bacteraemia [Recovered/Resolved]
  - Urinary tract infection [Not Recovered/Not Resolved]
  - Pneumonia [Not Recovered/Not Resolved]

NARRATIVE: CASE EVENT DATE: 20160616
